FAERS Safety Report 6747544-5 (Version None)
Quarter: 2010Q2

REPORT INFORMATION
  Report Type: 
  Country: None (occurrence: None)
  Receive Date: 20100528
  Receipt Date: 20100520
  Transmission Date: 20101027
  Serious: Yes (Death, Disabling)
  Sender: FDA-Public Use
  Company Number: GXKR2010GB05674

PATIENT
  Age: 77 Year
  Sex: Female

DRUGS (14)
  1. HALOPERIDOL HEXAL (NGX) [Suspect]
     Indication: AGITATION
     Dosage: 500 UG, QD
     Route: 048
     Dates: start: 20090414, end: 20100430
  2. TRAZODONE HCL [Suspect]
     Route: 065
  3. ASPIRIN [Concomitant]
  4. DIAZEPAM [Concomitant]
  5. AMPICILLIN SODIUM/SULBACTAM SODIUM [Concomitant]
  6. DONEPEZIL HCL [Concomitant]
  7. DOXAZOSIN MESYLATE [Concomitant]
  8. FELODIPINE [Concomitant]
  9. FLOXACILLIN SODIUM [Concomitant]
  10. IRBESARTAN [Concomitant]
  11. LORAZEPAM [Concomitant]
  12. METRONIDAZOLE [Concomitant]
  13. QUETIAPINE [Concomitant]
  14. VANCOMYCIN [Concomitant]

REACTIONS (1)
  - TARDIVE DYSKINESIA [None]
